FAERS Safety Report 9394325 (Version 1)
Quarter: 2013Q3

REPORT INFORMATION
  Report Type: Spontaneous
  Country: IL (occurrence: IL)
  Receive Date: 20130711
  Receipt Date: 20130711
  Transmission Date: 20140515
  Serious: Yes (Hospitalization, Other)
  Sender: FDA-Public Use
  Company Number: IL-ASTRAZENECA-2013SE50618

PATIENT
  Age: 49 Year
  Sex: Male

DRUGS (1)
  1. BRILINTA [Suspect]
     Indication: ACUTE MYOCARDIAL INFARCTION
     Route: 048

REACTIONS (1)
  - Thrombosis in device [Unknown]
